FAERS Safety Report 5270243-6 (Version None)
Quarter: 2007Q1

REPORT INFORMATION
  Report Type: 
  Country: None (occurrence: None)
  Receive Date: 20070320
  Receipt Date: 20070308
  Transmission Date: 20070707
  Serious: Yes (Death)
  Sender: FDA-Public Use
  Company Number: KR-PFIZER INC-2007000882

PATIENT
  Sex: Male
  Weight: 84 kg

DRUGS (4)
  1. ZYVOX [Suspect]
     Indication: ENTEROCOCCAL INFECTION
     Route: 042
     Dates: start: 20060320, end: 20060405
  2. AMPHOTERICIN B [Concomitant]
     Route: 042
     Dates: start: 20060328, end: 20060331
  3. MEROPENEM [Concomitant]
     Route: 042
     Dates: start: 20060304, end: 20060405
  4. PANTOPRAZOLE SODIUM [Concomitant]
     Route: 042
     Dates: start: 20060305, end: 20060329

REACTIONS (1)
  - INTRAVENTRICULAR HAEMORRHAGE [None]
